FAERS Safety Report 4187191 (Version 15)
Quarter: 2013Q2

REPORT INFORMATION
  Report Type: Spontaneous
  Country: JP (occurrence: JP)
  Receive Date: 20040809
  Receipt Date: 20130404
  Transmission Date: 20140414
  Serious: Yes (Death, Life-Threatening, Hospitalization)
  Sender: FDA-Public Use
  Company Number: PHBS2004JP10342

PATIENT
  Sex: 0
  Weight: 45 kg

DRUGS (11)
  1. SANDOSTATIN LAR [Suspect]
     Indication: VIPOMA
     Dosage: 20 MG
     Route: 030
     Dates: start: 20040707, end: 20040707
  2. SANDOSTATIN [Suspect]
     Indication: VIPOMA
     Dosage: 100 UG/D
     Route: 058
     Dates: start: 20040331, end: 20040629
  3. SANDOSTATIN [Suspect]
     Dosage: 50 UG, TID
     Route: 058
     Dates: start: 20040630, end: 20040712
  4. SANDOSTATIN [Suspect]
     Dosage: 50 UG, BID
     Route: 058
     Dates: start: 20040713, end: 20040719
  5. SANDOSTATIN [Suspect]
     Dosage: 50 UG/D
     Route: 058
     Dates: start: 20040720, end: 20040722
  6. SANDOSTATIN [Suspect]
     Dosage: 50 UG, TID
     Route: 058
     Dates: start: 20040723, end: 20040724
  7. SANDOSTATIN [Suspect]
     Dosage: 50 UG, 6QD
     Route: 058
     Dates: start: 20040725, end: 20040807
  8. SANDOSTATIN [Suspect]
     Dosage: 100 UG/D
     Route: 058
     Dates: start: 20040808, end: 20040811
  9. SANDOSTATIN [Suspect]
     Dosage: 200 UG/DAY
     Route: 058
     Dates: start: 20040812, end: 200503
  10. SANDOSTATIN [Suspect]
     Dosage: 300 UG DAILY
  11. TAKEPRON [Concomitant]
     Route: 048

REACTIONS (21)
  - Multi-organ failure [Fatal]
  - Malignant neoplasm progression [Fatal]
  - Tumour necrosis [Recovered/Resolved]
  - Diarrhoea [Recovered/Resolved]
  - Dehydration [Recovered/Resolved]
  - Renal failure acute [Recovered/Resolved]
  - Dyspnoea [Unknown]
  - Blood pressure decreased [Unknown]
  - Disseminated intravascular coagulation [Recovered/Resolved]
  - Depressed level of consciousness [Recovered/Resolved]
  - Oliguria [Recovered/Resolved]
  - Circulatory collapse [Recovered/Resolved]
  - Vomiting [Unknown]
  - Decreased appetite [Unknown]
  - Abdominal pain [Unknown]
  - Haemoglobin decreased [Unknown]
  - Haematocrit decreased [Unknown]
  - White blood cell count increased [Unknown]
  - Platelet count decreased [Unknown]
  - Cardiac failure congestive [Recovered/Resolved]
  - Drug ineffective [Recovered/Resolved]
